FAERS Safety Report 7913863-X (Version None)
Quarter: 2011Q4

REPORT INFORMATION
  Report Type: 
  Country: None (occurrence: None)
  Receive Date: 20111115
  Receipt Date: 20111104
  Transmission Date: 20120403
  Serious: Yes (Other)
  Sender: FDA-Public Use
  Company Number: US-BAYER-2011-090117

PATIENT
  Sex: Female

DRUGS (3)
  1. YAZ [Suspect]
     Dosage: UNK
     Route: 048
  2. YASMIN [Suspect]
     Route: 048
  3. DROSPIRENONE AND ETHINYL ESTRADIOL [Suspect]
     Route: 048

REACTIONS (3)
  - EMOTIONAL DISTRESS [None]
  - DEEP VEIN THROMBOSIS [None]
  - INJURY [None]
